FAERS Safety Report 7407233-0 (Version None)
Quarter: 2011Q2

REPORT INFORMATION
  Report Type: 
  Country: None (occurrence: None)
  Receive Date: 20110411
  Receipt Date: 20110316
  Transmission Date: 20111010
  Serious: No
  Sender: FDA-Public Use
  Company Number: US-B.I. PHARMACEUTICALS,INC./RIDGEFIELD-2011-BP-08447BP

PATIENT
  Sex: Female

DRUGS (5)
  1. FUROSEMIDE [Concomitant]
     Indication: CARDIAC FAILURE CONGESTIVE
     Route: 048
  2. DIGOXIN [Concomitant]
     Indication: CARDIAC FAILURE CONGESTIVE
     Route: 048
  3. DULERA TABLET [Concomitant]
     Indication: BRONCHITIS CHRONIC
     Route: 055
  4. SPIRIVA [Suspect]
     Indication: BRONCHITIS CHRONIC
     Dosage: 18 MCG
     Route: 055
     Dates: start: 20100301, end: 20110208
  5. VENTOLIN [Concomitant]
     Indication: BRONCHITIS CHRONIC
     Route: 055

REACTIONS (4)
  - ASTHENIA [None]
  - AGEUSIA [None]
  - INSOMNIA [None]
  - DRY MOUTH [None]
